FAERS Safety Report 4987091-4 (Version None)
Quarter: 2006Q2

REPORT INFORMATION
  Report Type: 
  Country: None (occurrence: None)
  Receive Date: 20060501
  Receipt Date: 20060420
  Transmission Date: 20061013
  Serious: Yes (Other)
  Sender: FDA-Public Use
  Company Number: 2006JP001117

PATIENT
  Age: 59 Year
  Sex: Female

DRUGS (9)
  1. CEFAZOLIN [Suspect]
     Indication: SURGERY
     Dosage: 2G UNKNOWN
     Route: 065
  2. SEVOFLURANE [Suspect]
     Route: 065
  3. PROPOFOL [Suspect]
     Dosage: 120MG UNKNOWN
     Route: 065
  4. MEPIVACAINE HCL [Suspect]
     Dosage: 1PCT UNKNOWN
     Route: 008
  5. VECURONIUM BROMIDE [Concomitant]
     Indication: INTUBATION
     Dosage: 6MG UNKNOWN
     Route: 065
  6. OXYGEN [Concomitant]
     Dosage: 11U UNKNOWN
     Route: 065
  7. AIR [Concomitant]
     Dosage: 31U UNKNOWN
     Route: 065
  8. RINGER'S [Concomitant]
     Indication: SURGERY
     Route: 065
  9. NORMAL SALINE [Concomitant]
     Indication: SURGERY
     Route: 065

REACTIONS (5)
  - BLOOD CORTICOTROPHIN INCREASED [None]
  - BLOOD CORTISOL INCREASED [None]
  - NEPHROGENIC DIABETES INSIPIDUS [None]
  - POLYURIA [None]
  - THIRST [None]
